FAERS Safety Report 11343388 (Version 1)
Quarter: 2015Q3

REPORT INFORMATION
  Report Type: Report from Study
  Country: ES (occurrence: ES)
  Receive Date: 20150806
  Receipt Date: 20150806
  Transmission Date: 20151125
  Serious: Yes (Hospitalization, Other)
  Sender: FDA-Public Use
  Company Number: ES-PFIZER INC-2015252683

PATIENT
  Age: 78 Year
  Sex: Female

DRUGS (6)
  1. BLOKIUM-DIU [Interacting]
     Active Substance: ATENOLOL\CHLORTHALIDONE
     Indication: HYPERTENSION
     Dosage: 100 MG, 1X/DAY
     Route: 048
     Dates: start: 2014, end: 20150123
  2. OMEPRAZOL [Concomitant]
     Active Substance: OMEPRAZOLE
     Dosage: 20 MG, 1X/DAY
  3. NATECAL [Concomitant]
     Active Substance: CALCIUM CARBONATE\CHOLECALCIFEROL
     Dosage: 1.5 G, 1X/DAY
  4. DIAZEPAM. [Concomitant]
     Active Substance: DIAZEPAM
     Dosage: 2.5 MG, 1X/DAY
  5. EXFORGE [Interacting]
     Active Substance: AMLODIPINE BESYLATE\VALSARTAN
     Indication: HYPERTENSION
     Dosage: 5 MG, 1X/DAY
     Route: 048
     Dates: start: 2014, end: 20150123
  6. CARDURA [Suspect]
     Active Substance: DOXAZOSIN MESYLATE
     Dosage: 4 MG, 1X/DAY
     Route: 048
     Dates: start: 2014, end: 20150123

REACTIONS (4)
  - Drug interaction [Recovered/Resolved]
  - Hyperkalaemia [Recovered/Resolved]
  - Metabolic acidosis [Recovered/Resolved]
  - Acute kidney injury [Recovered/Resolved]

NARRATIVE: CASE EVENT DATE: 20150120
